FAERS Safety Report 23144187 (Version 2)
Quarter: 2024Q1

REPORT INFORMATION
  Report Type: Spontaneous
  Country: US (occurrence: US)
  Receive Date: 20231103
  Receipt Date: 20240229
  Transmission Date: 20240410
  Serious: Yes (Other)
  Sender: FDA-Public Use
  Company Number: US-BRISTOL-MYERS SQUIBB COMPANY-2023-154125

PATIENT
  Age: 73 Year
  Sex: Female

DRUGS (1)
  1. REVLIMID [Suspect]
     Active Substance: LENALIDOMIDE
     Indication: Plasma cell myeloma
     Dosage: DAILY FOR 21 DAYS THEN 7 DAYS OFF
     Route: 048

REACTIONS (8)
  - COVID-19 [Unknown]
  - Anxiety [Unknown]
  - Fatigue [Unknown]
  - Neuropathy peripheral [Unknown]
  - Muscle spasms [Unknown]
  - Intracardiac thrombus [Unknown]
  - Product dose omission issue [Unknown]
  - Insurance issue [Unknown]
